FAERS Safety Report 18641441 (Version 1)
Quarter: 2020Q4

REPORT INFORMATION
  Report Type: Report from Study
  Country: US (occurrence: US)
  Receive Date: 20201221
  Receipt Date: 20201221
  Transmission Date: 20210114
  Serious: Yes (Hospitalization)
  Sender: FDA-Public Use
  Company Number: US-TAIHO ONCOLOGY  INC-EU-2020-04322

PATIENT
  Age: 53 Year
  Sex: Male
  Weight: 77.63 kg

DRUGS (7)
  1. LONSURF [Suspect]
     Active Substance: TIPIRACIL HYDROCHLORIDE\TRIFLURIDINE
     Indication: COLORECTAL CANCER METASTATIC
     Dosage: CYCLE NUMBER UNKNOWN
     Route: 048
     Dates: start: 20201101
  2. OXYCODONE [Concomitant]
     Active Substance: OXYCODONE
  3. OXYCONTIN [Concomitant]
     Active Substance: OXYCODONE HYDROCHLORIDE
  4. GABAPENTIN. [Concomitant]
     Active Substance: GABAPENTIN
  5. PROCHLORPERAZINE. [Concomitant]
     Active Substance: PROCHLORPERAZINE
  6. SUCRALFATE. [Concomitant]
     Active Substance: SUCRALFATE
  7. FLUAD QUAD [Concomitant]

REACTIONS (1)
  - Symptomatic treatment [Unknown]

NARRATIVE: CASE EVENT DATE: 20201215
